FAERS Safety Report 7425943-6 (Version None)
Quarter: 2011Q2

REPORT INFORMATION
  Report Type: 
  Country: None (occurrence: None)
  Receive Date: 20110420
  Receipt Date: 20110218
  Transmission Date: 20111010
  Serious: Yes (Death, Other)
  Sender: FDA-Public Use
  Company Number: US-BAYER-201011107NA

PATIENT
  Age: 78 Year
  Sex: Male
  Weight: 86.168 kg

DRUGS (7)
  1. PROTAMINE SULFATE [Concomitant]
     Dosage: UNK
     Route: 042
     Dates: start: 20020524, end: 20020524
  2. FENTANYL [Concomitant]
     Dosage: UNK
     Route: 042
     Dates: start: 20020524, end: 20020524
  3. VERSED [Concomitant]
     Dosage: UNK
     Route: 042
     Dates: start: 20020524, end: 20020524
  4. TRASYLOL [Suspect]
     Indication: CORONARY ARTERY BYPASS
     Dosage: 1 ML, UNK
     Route: 042
     Dates: start: 20020524, end: 20020524
  5. HEPARIN [Concomitant]
     Dosage: UNK
     Route: 042
     Dates: start: 20020524, end: 20020524
  6. LIDOCAINE [Concomitant]
     Dosage: UNK
     Route: 042
     Dates: start: 20020524, end: 20020524
  7. TRASYLOL [Suspect]
     Indication: AORTIC VALVE REPLACEMENT
     Dosage: 50ML/HR UNK, UNK
     Route: 042
     Dates: start: 20020524, end: 20020524

REACTIONS (14)
  - CARDIAC DISORDER [None]
  - RENAL FAILURE [None]
  - RENAL IMPAIRMENT [None]
  - ANHEDONIA [None]
  - DEPRESSION [None]
  - UNEVALUABLE EVENT [None]
  - INJURY [None]
  - ORGAN FAILURE [None]
  - ANXIETY [None]
  - FEAR [None]
  - CEREBROVASCULAR ACCIDENT [None]
  - RENAL INJURY [None]
  - DEATH [None]
  - PAIN [None]
